FAERS Safety Report 13545346 (Version 1)
Quarter: 2017Q2

REPORT INFORMATION
  Report Type: Spontaneous
  Country: US (occurrence: US)
  Receive Date: 20170513
  Receipt Date: 20170513
  Transmission Date: 20170830
  Serious: Yes (Disabling)
  Sender: FDA-Public Use
  Company Number: None

PATIENT
  Age: 60 Year
  Sex: Female
  Weight: 101.7 kg

DRUGS (10)
  1. MAXALT [Concomitant]
     Active Substance: RIZATRIPTAN BENZOATE
  2. LOSARTAN. [Concomitant]
     Active Substance: LOSARTAN
  3. LEVOTHYROXINE. [Concomitant]
     Active Substance: LEVOTHYROXINE
  4. CLONAZEPAM. [Concomitant]
     Active Substance: CLONAZEPAM
  5. CENTRUM [Concomitant]
     Active Substance: VITAMINS
  6. ROPINIROLE. [Concomitant]
     Active Substance: ROPINIROLE
  7. VITAMIN D [Concomitant]
     Active Substance: CHOLECALCIFEROL
  8. DESVENLAFAXINE SUR ER [Suspect]
     Active Substance: DESVENLAFAXINE
     Indication: MAJOR DEPRESSION
     Dosage: ?          QUANTITY:1 TABLET(S);?
     Route: 048
     Dates: start: 20170501, end: 20170511
  9. PROBIOTIC [Concomitant]
     Active Substance: PROBIOTICS NOS
  10. BUPROPRION [Concomitant]
     Active Substance: BUPROPION

REACTIONS (7)
  - Crying [None]
  - Depression [None]
  - Suicidal ideation [None]
  - Social avoidant behaviour [None]
  - Anxiety [None]
  - Tremor [None]
  - Anhedonia [None]

NARRATIVE: CASE EVENT DATE: 20170510
